FAERS Safety Report 20544976 (Version 2)
Quarter: 2023Q2

REPORT INFORMATION
  Report Type: Spontaneous
  Country: US (occurrence: US)
  Receive Date: 20220303
  Receipt Date: 20230420
  Transmission Date: 20230721
  Serious: No
  Sender: FDA-Public Use
  Company Number: US-ALLERGAN-2144489US

PATIENT
  Sex: Female

DRUGS (1)
  1. RESTASIS [Suspect]
     Active Substance: CYCLOSPORINE
     Indication: Dry eye
     Dosage: 1 GTT, BID
     Route: 047

REACTIONS (3)
  - Ocular hyperaemia [Recovering/Resolving]
  - Superficial injury of eye [Recovering/Resolving]
  - Product delivery mechanism issue [Unknown]

NARRATIVE: CASE EVENT DATE: 20211222
